FAERS Safety Report 21375631 (Version 2)
Quarter: 2022Q4

REPORT INFORMATION
  Report Type: Spontaneous
  Country: DE (occurrence: DE)
  Receive Date: 20220926
  Receipt Date: 20221021
  Transmission Date: 20230112
  Serious: Yes (Hospitalization, Other)
  Sender: FDA-Public Use
  Company Number: DE-ELI_LILLY_AND_COMPANY-DE202209005565

PATIENT
  Sex: Male

DRUGS (3)
  1. INSULIN HUMAN [Suspect]
     Active Substance: INSULIN HUMAN
     Indication: Diabetes mellitus
     Dosage: UNK, UNKNOWN
     Route: 058
     Dates: start: 2013
  2. HUMALOG [Suspect]
     Active Substance: INSULIN LISPRO
     Indication: Product used for unknown indication
     Dosage: UNK UNK, UNKNOWN
     Route: 065
  3. METFORMIN [Concomitant]
     Active Substance: METFORMIN HYDROCHLORIDE
     Indication: Product used for unknown indication

REACTIONS (4)
  - Neoplasm [Unknown]
  - Metastasis [Unknown]
  - Incorrect dose administered [Unknown]
  - Blood glucose abnormal [Unknown]

NARRATIVE: CASE EVENT DATE: 20220301
